FAERS Safety Report 25856337 (Version 1)
Quarter: 2025Q3

REPORT INFORMATION
  Report Type: Spontaneous
  Country: JP (occurrence: JP)
  Receive Date: 20250928
  Receipt Date: 20250928
  Transmission Date: 20251020
  Serious: Yes (Hospitalization, Other)
  Sender: MERCK SHARP & DOHME LLC
  Company Number: JP-009507513-2332975

PATIENT
  Age: 7 Decade
  Sex: Female

DRUGS (3)
  1. KEYTRUDA [Suspect]
     Active Substance: PEMBROLIZUMAB
     Indication: Cholangiocarcinoma
  2. GEMCITABINE [Suspect]
     Active Substance: GEMCITABINE
     Indication: Cholangiocarcinoma
  3. CISPLATIN [Suspect]
     Active Substance: CISPLATIN
     Indication: Cholangiocarcinoma

REACTIONS (12)
  - Myocarditis [Unknown]
  - Blood lactate dehydrogenase abnormal [Unknown]
  - Haemophagocytic lymphohistiocytosis [Unknown]
  - Inflammation [Not Recovered/Not Resolved]
  - Troponin I abnormal [Unknown]
  - Platelet count abnormal [Recovered/Resolved]
  - Serum ferritin abnormal [Unknown]
  - Pyrexia [Unknown]
  - Blood creatine phosphokinase abnormal [Unknown]
  - Eyelid ptosis [Unknown]
  - Malaise [Unknown]
  - Hepatic enzyme increased [Unknown]
